FAERS Safety Report 20562588 (Version 1)
Quarter: 2022Q1

REPORT INFORMATION
  Report Type: Spontaneous
  Country: US (occurrence: US)
  Receive Date: 20220307
  Receipt Date: 20220307
  Transmission Date: 20220424
  Serious: Yes (Other)
  Sender: FDA-Public Use
  Company Number: US-PFIZER INC-202200323374

PATIENT
  Age: 66 Year
  Sex: Male

DRUGS (1)
  1. XELJANZ XR [Suspect]
     Active Substance: TOFACITINIB CITRATE
     Indication: Rheumatoid arthritis
     Dosage: 11 MG, 1X/DAY TAKE 1 TABLET BY MOUTH ONCE DAILY)
     Route: 048
     Dates: start: 20210108

REACTIONS (10)
  - Interstitial lung disease [Unknown]
  - Rheumatoid arthritis [Unknown]
  - Drug ineffective [Unknown]
  - Arthralgia [Unknown]
  - Inflammatory marker increased [Not Recovered/Not Resolved]
  - Musculoskeletal stiffness [Unknown]
  - C-reactive protein abnormal [Not Recovered/Not Resolved]
  - Electrophoresis abnormal [Not Recovered/Not Resolved]
  - Inflammation [Not Recovered/Not Resolved]
  - Arthralgia [Unknown]
